FAERS Safety Report 26144259 (Version 1)
Quarter: 2025Q4

REPORT INFORMATION
  Report Type: Spontaneous
  Country: US (occurrence: US)
  Receive Date: 20251211
  Receipt Date: 20251211
  Transmission Date: 20260118
  Serious: No
  Sender: Kenvue
  Company Number: US-KENVUE-20251108322

PATIENT
  Sex: Female

DRUGS (11)
  1. TYLENOL [Suspect]
     Active Substance: ACETAMINOPHEN
     Indication: Headache
     Dosage: UNK
     Route: 065
  2. TYLENOL [Suspect]
     Active Substance: ACETAMINOPHEN
     Indication: Migraine
  3. TREPROSTINIL [Concomitant]
     Active Substance: TREPROSTINIL
     Indication: Pulmonary arterial hypertension
     Dosage: 0.125 MILLIGRAM, THRICE A DAY
     Dates: start: 202509, end: 20250921
  4. TREPROSTINIL [Concomitant]
     Active Substance: TREPROSTINIL
     Dosage: 0.25 MILLIGRAM, THRICE A DAY
     Dates: start: 20250922, end: 20250923
  5. TREPROSTINIL [Concomitant]
     Active Substance: TREPROSTINIL
     Dosage: 0.125 MILLIGRAM, THRICE A DAY
     Dates: start: 2025, end: 202510
  6. TREPROSTINIL [Concomitant]
     Active Substance: TREPROSTINIL
     Dosage: 0.125 MILLIGRAM, THRICE A DAY, RESTARTED
     Dates: start: 2025
  7. TREPROSTINIL [Concomitant]
     Active Substance: TREPROSTINIL
     Dosage: UNK
  8. ORENITRAM [Concomitant]
     Active Substance: TREPROSTINIL
     Indication: Pulmonary arterial hypertension
     Dosage: 0.125 MILLIGRAM, THRICE A DAY
     Dates: start: 202509
  9. ORENITRAM [Concomitant]
     Active Substance: TREPROSTINIL
     Dosage: 0.25 MILLIGRAM, THRICE A DAY
     Dates: start: 20250922
  10. ORENITRAM [Concomitant]
     Active Substance: TREPROSTINIL
     Dosage: 0.125 MILLIGRAM, THRICE A DAY
     Dates: start: 20250924
  11. OPSUMIT [Concomitant]
     Active Substance: MACITENTAN
     Indication: Product used for unknown indication
     Route: 065

REACTIONS (1)
  - Drug ineffective [Unknown]
